FAERS Safety Report 20257068 (Version 1)
Quarter: 2021Q4

REPORT INFORMATION
  Report Type: Spontaneous
  Country: US (occurrence: None)
  Receive Date: 20211230
  Receipt Date: 20211230
  Transmission Date: 20220303
  Serious: Yes (Other)
  Sender: FDA-Public Use
  Company Number: US-ROCHE-2982731

PATIENT
  Age: 59 Year
  Sex: Male
  Weight: 136.3 kg

DRUGS (3)
  1. TOCILIZUMAB [Suspect]
     Active Substance: TOCILIZUMAB
     Indication: COVID-19
     Route: 042
     Dates: start: 20211202, end: 20211202
  2. REMDESIVIR [Concomitant]
     Active Substance: REMDESIVIR
     Dates: start: 20211202, end: 20211202
  3. DEXAMETHASONE [Concomitant]
     Active Substance: DEXAMETHASONE
     Dates: start: 20211203, end: 20211211

REACTIONS (13)
  - Hypoxia [Unknown]
  - Aortic thrombosis [Unknown]
  - Hyperkalaemia [Unknown]
  - Off label use [Unknown]
  - Confusional state [Unknown]
  - Lethargy [Unknown]
  - Leukocytosis [Unknown]
  - Agitation [Unknown]
  - Ecchymosis [Unknown]
  - Peripheral coldness [Unknown]
  - Pulse absent [Unknown]
  - Acidosis [Unknown]
  - Leukocytosis [Unknown]
